FAERS Safety Report 17445030 (Version 2)
Quarter: 2020Q1

REPORT INFORMATION
  Report Type: Spontaneous
  Country: JP (occurrence: JP)
  Receive Date: 20200221
  Receipt Date: 20200318
  Transmission Date: 20200409
  Serious: Yes (Other)
  Sender: FDA-Public Use
  Company Number: JP-BAXTER-2020BAX003585

PATIENT
  Age: 60 Year
  Sex: Male

DRUGS (13)
  1. PRIMPERAN [Suspect]
     Active Substance: METOCLOPRAMIDE HYDROCHLORIDE
     Indication: PRODUCT USED FOR UNKNOWN INDICATION
     Route: 065
     Dates: start: 20191206, end: 20191206
  2. ISOTONIC SODIUM CHLORIDE [Suspect]
     Active Substance: SODIUM CHLORIDE
     Indication: PRODUCT USED FOR UNKNOWN INDICATION
     Dosage: SOLUTION
     Route: 065
     Dates: start: 20191206, end: 20191206
  3. SOLU-MEDROL [Suspect]
     Active Substance: METHYLPREDNISOLONE SODIUM SUCCINATE
     Indication: PRODUCT USED FOR UNKNOWN INDICATION
     Route: 065
     Dates: start: 20191205, end: 20191207
  4. SANDIMMUN [Suspect]
     Active Substance: CYCLOSPORINE
     Indication: PRODUCT USED FOR UNKNOWN INDICATION
     Route: 065
     Dates: start: 20191205, end: 20191212
  5. PREDNISOLONE. [Suspect]
     Active Substance: PREDNISOLONE
     Indication: PRODUCT USED FOR UNKNOWN INDICATION
     Route: 065
     Dates: start: 20191208
  6. BAKTAR [Suspect]
     Active Substance: SULFAMETHOXAZOLE\TRIMETHOPRIM
     Indication: PNEUMOCYSTIS JIROVECII PNEUMONIA
     Route: 048
     Dates: start: 20191210, end: 20191216
  7. HEPARIN NA LOCK [Suspect]
     Active Substance: HEPARIN SODIUM
     Indication: PRODUCT USED FOR UNKNOWN INDICATION
     Route: 065
     Dates: start: 20191206, end: 20191206
  8. TAKECAB [Suspect]
     Active Substance: VONOPRAZAN FUMURATE
     Indication: CHRONIC GASTRITIS
  9. HEPARIN NA LOCK [Suspect]
     Active Substance: HEPARIN SODIUM
     Route: 065
     Dates: start: 20191210, end: 20191212
  10. ENDOXAN 1G [Suspect]
     Active Substance: CYCLOPHOSPHAMIDE
     Indication: DERMATOMYOSITIS
     Dosage: ENDOXAN PULSE
     Route: 041
     Dates: start: 20191206, end: 20191206
  11. TAKECAB [Suspect]
     Active Substance: VONOPRAZAN FUMURATE
     Indication: GASTROINTESTINAL DISORDER PROPHYLAXIS
  12. CALONAL [Suspect]
     Active Substance: ACETAMINOPHEN
     Indication: PRODUCT USED FOR UNKNOWN INDICATION
     Route: 065
     Dates: start: 20191206, end: 20191207
  13. TAKECAB [Suspect]
     Active Substance: VONOPRAZAN FUMURATE
     Indication: BENIGN OESOPHAGEAL NEOPLASM
     Route: 048
     Dates: start: 20191208, end: 20191216

REACTIONS (4)
  - Chronic gastritis [Unknown]
  - White blood cell count decreased [Recovered/Resolved]
  - Oesophageal disorder [Unknown]
  - Neutrophil count decreased [Recovered/Resolved]

NARRATIVE: CASE EVENT DATE: 20191207
